FAERS Safety Report 15997515 (Version 4)
Quarter: 2019Q4

REPORT INFORMATION
  Report Type: Spontaneous
  Country: JP (occurrence: JP)
  Receive Date: 20190222
  Receipt Date: 20191105
  Transmission Date: 20200122
  Serious: Yes (Hospitalization)
  Sender: FDA-Public Use
  Company Number: JP-JNJFOC-20181001164

PATIENT
  Age: 46 Year
  Sex: Male
  Weight: 56 kg

DRUGS (13)
  1. RISPERIDONE. [Suspect]
     Active Substance: RISPERIDONE
     Route: 048
     Dates: start: 20180927
  2. INVEGA [Suspect]
     Active Substance: PALIPERIDONE
     Indication: SCHIZOPHRENIA
     Route: 048
     Dates: start: 2012
  3. RISPERIDONE. [Suspect]
     Active Substance: RISPERIDONE
     Route: 048
     Dates: start: 20180308, end: 20180829
  4. RISPERIDONE. [Suspect]
     Active Substance: RISPERIDONE
     Dosage: IN THE EVENING
     Route: 048
     Dates: start: 20180830, end: 20180913
  5. TEGRETOL [Concomitant]
     Active Substance: CARBAMAZEPINE
     Indication: SCHIZOPHRENIA
     Route: 048
     Dates: start: 20160902, end: 20180913
  6. TEGRETOL [Concomitant]
     Active Substance: CARBAMAZEPINE
     Route: 048
     Dates: start: 20180927
  7. RISPERIDONE. [Suspect]
     Active Substance: RISPERIDONE
     Indication: SCHIZOPHRENIA
     Route: 048
     Dates: start: 20141120
  8. NELBON [Concomitant]
     Active Substance: NITRAZEPAM
     Indication: SCHIZOPHRENIA
     Dosage: AT BED TIME
     Route: 048
     Dates: start: 20160902, end: 20180913
  9. AKINETON [Concomitant]
     Active Substance: BIPERIDEN HYDROCHLORIDE
     Indication: PARKINSONISM
     Dosage: BIPERIEN HYDROCHLORIDE
     Route: 048
     Dates: start: 20141120
  10. INVEGA [Suspect]
     Active Substance: PALIPERIDONE
     Dosage: IN THE MORNING
     Route: 048
     Dates: start: 20180830, end: 20180913
  11. LONASEN [Concomitant]
     Active Substance: BLONANSERIN
     Indication: SCHIZOPHRENIA
     Route: 048
     Dates: start: 20141120, end: 20180913
  12. LONASEN [Concomitant]
     Active Substance: BLONANSERIN
     Route: 048
     Dates: start: 20180918
  13. NELBON [Concomitant]
     Active Substance: NITRAZEPAM
     Route: 048
     Dates: start: 20180927

REACTIONS (4)
  - Shock symptom [Recovered/Resolved]
  - Pneumonia [Recovered/Resolved]
  - Agranulocytosis [Recovered/Resolved]
  - Delusion [Recovering/Resolving]

NARRATIVE: CASE EVENT DATE: 20180913
